FAERS Safety Report 20656354 (Version 1)
Quarter: 2022Q1

REPORT INFORMATION
  Report Type: Spontaneous
  Country: PL (occurrence: PL)
  Receive Date: 20220331
  Receipt Date: 20220331
  Transmission Date: 20220423
  Serious: Yes (Other)
  Sender: FDA-Public Use
  Company Number: PL-TOLMAR, INC.-21PL031964

PATIENT
  Age: 64 Year
  Sex: Male

DRUGS (3)
  1. ELIGARD [Suspect]
     Active Substance: LEUPROLIDE ACETATE
     Indication: Prostate cancer metastatic
     Dosage: 22.5 MILLIGRAM, Q 3 MONTH
     Dates: start: 201811
  2. FLUTAMIDE [Suspect]
     Active Substance: FLUTAMIDE
     Indication: Blood testosterone increased
     Dosage: 750 MILLIGRAM, QD
     Dates: start: 2018, end: 2018
  3. DOCETAXEL [Concomitant]
     Active Substance: DOCETAXEL
     Indication: Chemotherapy
     Dosage: 75 MILLIGRAM PER SQUARE METRE
     Dates: start: 201812, end: 201904

REACTIONS (2)
  - Prostate cancer [Unknown]
  - Hot flush [Unknown]

NARRATIVE: CASE EVENT DATE: 20210101
